FAERS Safety Report 7543698-1 (Version None)
Quarter: 2011Q2

REPORT INFORMATION
  Report Type: 
  Country: None (occurrence: None)
  Receive Date: 20110613
  Receipt Date: 20030902
  Transmission Date: 20111010
  Serious: Yes (Death, Hospitalization)
  Sender: FDA-Public Use
  Company Number: PHEH2003US05619

PATIENT
  Sex: Male

DRUGS (3)
  1. CELEBREX [Concomitant]
     Dosage: UNK
  2. AMBIEN [Concomitant]
     Dosage: UNK
  3. EXELON [Suspect]
     Indication: DEMENTIA ALZHEIMER'S TYPE
     Dosage: 6 MG, BID
     Route: 048
     Dates: start: 20011111

REACTIONS (6)
  - URINARY TRACT INFECTION [None]
  - VOMITING [None]
  - NAUSEA [None]
  - DEATH [None]
  - AGGRESSION [None]
  - DEHYDRATION [None]
